FAERS Safety Report 8581705-8 (Version None)
Quarter: 2012Q3

REPORT INFORMATION
  Report Type: 
  Country: None (occurrence: None)
  Receive Date: 20120801
  Receipt Date: 20120801
  Transmission Date: 20120928
  Serious: Yes (Other)
  Sender: FDA-Public Use
  Company Number: None

PATIENT
  Sex: Male

DRUGS (2)
  1. LISINOPRIL [Suspect]
  2. VICODIN [Suspect]

REACTIONS (3)
  - DYSGEUSIA [None]
  - SUICIDAL IDEATION [None]
  - DEHYDRATION [None]
